FAERS Safety Report 13304491 (Version 1)
Quarter: 2017Q1

REPORT INFORMATION
  Report Type: Spontaneous
  Country: US (occurrence: US)
  Receive Date: 20170307
  Receipt Date: 20170307
  Transmission Date: 20170428
  Serious: Yes (Death, Hospitalization)
  Sender: FDA-Public Use
  Company Number: None

PATIENT
  Age: 77 Year
  Sex: Male
  Weight: 82.1 kg

DRUGS (1)
  1. MEMANTINE HYDROCHLORIDE. [Suspect]
     Active Substance: MEMANTINE HYDROCHLORIDE
     Dates: end: 20170103

REACTIONS (9)
  - Respiratory distress [None]
  - Multiple organ dysfunction syndrome [None]
  - Bandaemia [None]
  - Lactic acidosis [None]
  - Peritonitis [None]
  - Hypoxia [None]
  - Clostridium test positive [None]
  - Sepsis [None]
  - Colitis [None]

NARRATIVE: CASE EVENT DATE: 20170124
